FAERS Safety Report 7367058-1 (Version None)
Quarter: 2011Q1

REPORT INFORMATION
  Report Type: 
  Country: None (occurrence: None)
  Receive Date: 20110322
  Receipt Date: 20110309
  Transmission Date: 20110831
  Serious: Yes (Other)
  Sender: FDA-Public Use
  Company Number: US-JNJFOC-20110304516

PATIENT
  Sex: Female
  Weight: 63.5 kg

DRUGS (8)
  1. REMICADE [Suspect]
     Route: 042
  2. FUROSEMIDE [Concomitant]
     Indication: HYPERTENSION
     Route: 048
  3. BENTYL [Concomitant]
     Indication: IRRITABLE BOWEL SYNDROME
     Route: 048
  4. TRAMADOL [Concomitant]
     Indication: IRRITABLE BOWEL SYNDROME
     Route: 048
  5. ONDANSETRON [Concomitant]
     Indication: NAUSEA
     Route: 048
  6. REMICADE [Suspect]
     Indication: COLITIS ULCERATIVE
     Route: 042
  7. GEMFIBROZIL [Concomitant]
     Indication: BLOOD TRIGLYCERIDES INCREASED
     Route: 048
  8. COLAZAL [Concomitant]
     Indication: COLITIS ULCERATIVE
     Route: 048

REACTIONS (2)
  - RECTAL HAEMORRHAGE [None]
  - WHITE BLOOD CELL COUNT DECREASED [None]
